FAERS Safety Report 5655515-5 (Version None)
Quarter: 2008Q1

REPORT INFORMATION
  Report Type: 
  Country: None (occurrence: None)
  Receive Date: 20080307
  Receipt Date: 20080225
  Transmission Date: 20080703
  Serious: Yes (Other)
  Sender: FDA-Public Use
  Company Number: JP-ROCHE-550765

PATIENT
  Age: 35 Year
  Sex: Male

DRUGS (8)
  1. HORIZON [Suspect]
     Indication: NARCOLEPSY
     Dosage: INDICATION: NARCOLEPSY, DEPRESSED STATE.
     Route: 048
     Dates: start: 20040201
  2. RITALIN [Concomitant]
  3. PEMOLINE [Concomitant]
  4. ANAFRANIL [Concomitant]
  5. LEXOTAN [Concomitant]
  6. AKINETON [Concomitant]
  7. HALOPERIDOL [Concomitant]
  8. INSULIN [Concomitant]

REACTIONS (1)
  - COGNITIVE DISORDER [None]
